FAERS Safety Report 5225391-3 (Version None)
Quarter: 2007Q1

REPORT INFORMATION
  Report Type: 
  Country: None (occurrence: None)
  Receive Date: 20070131
  Receipt Date: 20070126
  Transmission Date: 20070707
  Serious: Yes (Disabling)
  Sender: FDA-Public Use
  Company Number: GB-SHR-GB-2007-002735

PATIENT
  Age: 71 Year
  Sex: Female
  Weight: 90 kg

DRUGS (3)
  1. ULTRAVIST 300 [Suspect]
     Dosage: 100 ML, 1 DOSE
     Route: 042
     Dates: start: 20061112, end: 20061112
  2. ATENOLOL [Concomitant]
     Dosage: 50 MG, UNK
     Route: 048
     Dates: start: 20030101
  3. CITALOPRAM HYDROBROMIDE [Concomitant]
     Indication: FIBROMYALGIA
     Dosage: 10 MG, UNK
     Route: 048
     Dates: start: 20060101

REACTIONS (5)
  - CYSTITIS [None]
  - DIARRHOEA [None]
  - FIBROMYALGIA [None]
  - INJECTION SITE PAIN [None]
  - VOMITING [None]
